FAERS Safety Report 19809953 (Version 1)
Quarter: 2021Q3

REPORT INFORMATION
  Report Type: Spontaneous
  Country: US (occurrence: US)
  Receive Date: 20210909
  Receipt Date: 20210909
  Transmission Date: 20211014
  Serious: No
  Sender: FDA-Public Use
  Company Number: US-REGENERON PHARMACEUTICALS, INC.-2021-37989

PATIENT

DRUGS (10)
  1. ZANTAC [Concomitant]
     Active Substance: RANITIDINE HYDROCHLORIDE
     Indication: PRODUCT USED FOR UNKNOWN INDICATION
     Dosage: 150 MG, UNK
     Dates: start: 20210328
  2. CORTISONE [Concomitant]
     Active Substance: CORTISONE
     Indication: PRURITUS
     Dosage: UNK
     Dates: start: 20210309
  3. BENADRYL [Concomitant]
     Active Substance: DIPHENHYDRAMINE HYDROCHLORIDE
     Indication: PRURITUS
     Dosage: UNK
     Dates: start: 20210328
  4. BENADRYL [Concomitant]
     Active Substance: DIPHENHYDRAMINE HYDROCHLORIDE
     Indication: INJECTION SITE ERYTHEMA
  5. TYLENOL [Concomitant]
     Active Substance: ACETAMINOPHEN
     Indication: PREMEDICATION
     Dosage: UNK
     Dates: start: 202103
  6. CORTISONE [Concomitant]
     Active Substance: CORTISONE
     Indication: INJECTION SITE WARMTH
  7. PRALUENT [Suspect]
     Active Substance: ALIROCUMAB
     Indication: HYPERCHOLESTEROLAEMIA
     Dosage: 75 MG, UNK
     Route: 058
     Dates: start: 20210309
  8. CLARITIN [Concomitant]
     Active Substance: LORATADINE
     Indication: PREMEDICATION
     Dosage: UNK
     Dates: start: 202103
  9. CORTISONE [Concomitant]
     Active Substance: CORTISONE
     Indication: INJECTION SITE ERYTHEMA
  10. CORTISONE [Concomitant]
     Active Substance: CORTISONE
     Indication: INJECTION SITE PAIN

REACTIONS (15)
  - Feeling abnormal [Unknown]
  - Injection site erythema [Recovering/Resolving]
  - Injection site warmth [Recovering/Resolving]
  - Chest pain [Recovered/Resolved]
  - Fatigue [Unknown]
  - Injection site pain [Not Recovered/Not Resolved]
  - Injection site pruritus [Unknown]
  - Malaise [Recovered/Resolved]
  - Injection site urticaria [Unknown]
  - Inappropriate schedule of product administration [Unknown]
  - Tremor [Unknown]
  - Dyspnoea [Recovered/Resolved]
  - Asthma [Unknown]
  - Anxiety [Unknown]
  - Dyspnoea exertional [Unknown]

NARRATIVE: CASE EVENT DATE: 202103
